FAERS Safety Report 7816688-9 (Version None)
Quarter: 2011Q4

REPORT INFORMATION
  Report Type: 
  Country: None (occurrence: None)
  Receive Date: 20111017
  Receipt Date: 20111010
  Transmission Date: 20120403
  Serious: Yes (Other)
  Sender: FDA-Public Use
  Company Number: US-PFIZER INC-2011241676

PATIENT
  Sex: Female

DRUGS (2)
  1. ASPERCREME [Concomitant]
     Indication: PAIN
     Dosage: UNK
  2. NEURONTIN [Suspect]
     Indication: PAIN
     Dosage: 1200 MG, DAILY
     Dates: end: 20110601

REACTIONS (3)
  - URINARY RETENTION [None]
  - MICTURITION URGENCY [None]
  - INSOMNIA [None]
